FAERS Safety Report 24977498 (Version 1)
Quarter: 2025Q1

REPORT INFORMATION
  Report Type: Spontaneous
  Country: RU (occurrence: RU)
  Receive Date: 20250217
  Receipt Date: 20250217
  Transmission Date: 20250408
  Serious: Yes (Death)
  Sender: VERTEX
  Company Number: RU-VERTEX PHARMACEUTICALS-2025-002629

PATIENT

DRUGS (1)
  1. TRIKAFTA [Suspect]
     Active Substance: ELEXACAFTOR\IVACAFTOR\TEZACAFTOR
     Indication: Cystic fibrosis
     Route: 048
     Dates: start: 202406

REACTIONS (2)
  - Pneumonia [Fatal]
  - Withdrawal syndrome [Fatal]
